FAERS Safety Report 6001899-8 (Version None)
Quarter: 2008Q4

REPORT INFORMATION
  Report Type: 
  Country: None (occurrence: None)
  Receive Date: 20081212
  Receipt Date: 20081209
  Transmission Date: 20090506
  Serious: Yes (Death)
  Sender: FDA-Public Use
  Company Number: 2008SP024963

PATIENT
  Age: 51 Year
  Sex: Female

DRUGS (1)
  1. NOXAFIL [Suspect]
     Indication: ACUTE MYELOID LEUKAEMIA
     Dosage: PO
     Route: 048

REACTIONS (1)
  - GRAFT VERSUS HOST DISEASE [None]
